FAERS Safety Report 24354092 (Version 1)
Quarter: 2024Q3

REPORT INFORMATION
  Report Type: Spontaneous
  Country: BR (occurrence: BR)
  Receive Date: 20240923
  Receipt Date: 20240923
  Transmission Date: 20241017
  Serious: Yes (Other)
  Sender: NOVARTIS
  Company Number: BR-002147023-NVSC2024BR102168

PATIENT
  Sex: Female
  Weight: 93 kg

DRUGS (7)
  1. FEMARA [Suspect]
     Active Substance: LETROZOLE
     Indication: Breast cancer
     Dosage: 1 DOSAGE FORM, QD (1 TABLET PER DAY (2.5 WITH 28 TABLETS))
     Route: 065
     Dates: start: 2020
  2. ECASIL [Concomitant]
     Indication: Blood pressure measurement
     Dosage: 81 MG (AFTER LUNCH)
     Route: 065
  3. AMIODARONE HYDROCHLORIDE [Concomitant]
     Active Substance: AMIODARONE HYDROCHLORIDE
     Indication: Cardiac disorder
     Dosage: UNK
     Route: 065
  4. ROCURONIUM BROMIDE [Concomitant]
     Active Substance: ROCURONIUM BROMIDE
     Indication: Arrhythmia
     Dosage: 100 MG (3 TIMES PER WEEK)
     Route: 065
  5. ZART [Concomitant]
     Indication: Product used for unknown indication
     Dosage: UNK
     Route: 065
  6. AMILORIDE HYDROCHLORIDE\CHLORTHALIDONE [Concomitant]
     Active Substance: AMILORIDE HYDROCHLORIDE\CHLORTHALIDONE
     Indication: Product used for unknown indication
     Dosage: UNK
     Route: 065
  7. SOMAGIN [Concomitant]
     Indication: Product used for unknown indication
     Dosage: UNK
     Route: 065

REACTIONS (6)
  - Skin cancer [Unknown]
  - Pruritus [Unknown]
  - Pain in extremity [Unknown]
  - Weight increased [Unknown]
  - Dengue fever [Unknown]
  - Weight decreased [Unknown]
